FAERS Safety Report 11343024 (Version 1)
Quarter: 2015Q3

REPORT INFORMATION
  Report Type: Spontaneous
  Country: US (occurrence: US)
  Receive Date: 20150805
  Receipt Date: 20150805
  Transmission Date: 20151125
  Serious: No
  Sender: FDA-Public Use
  Company Number: US-ANACOR-2015ANA00025

PATIENT
  Age: 69 Year
  Sex: Female
  Weight: 52.15 kg

DRUGS (3)
  1. SYNTHROID [Concomitant]
     Active Substance: LEVOTHYROXINE SODIUM
  2. UNSPECIFIED SUPPLEMENTS FOR ^GASTRO^ STUFF [Concomitant]
  3. KERYDIN [Suspect]
     Active Substance: TAVABOROLE
     Indication: ONYCHOMYCOSIS
     Dosage: 1 GTT, 1X/DAY
     Route: 061
     Dates: start: 20150313, end: 201503

REACTIONS (3)
  - Onychomycosis [Recovering/Resolving]
  - Nail discolouration [Recovered/Resolved]
  - Application site induration [Not Recovered/Not Resolved]

NARRATIVE: CASE EVENT DATE: 201503
